FAERS Safety Report 23744485 (Version 4)
Quarter: 2024Q3

REPORT INFORMATION
  Report Type: Spontaneous
  Country: FR (occurrence: FR)
  Receive Date: 20240415
  Receipt Date: 20240830
  Transmission Date: 20241017
  Serious: Yes (Hospitalization)
  Sender: PFIZER
  Company Number: None

PATIENT
  Age: 58 Year
  Sex: Female

DRUGS (2)
  1. ETHINYL ESTRADIOL\LEVONORGESTREL [Suspect]
     Active Substance: ETHINYL ESTRADIOL\LEVONORGESTREL
     Indication: Contraception
     Dosage: 1 TABLET PER DAY FOR 21 DAYS, THEN STOP FOR 7 DAYS, THEN RESUME FOR 21 DAYS
     Route: 048
     Dates: start: 1986
  2. ETHINYL ESTRADIOL\LEVONORGESTREL [Suspect]
     Active Substance: ETHINYL ESTRADIOL\LEVONORGESTREL
     Indication: Contraception
     Dosage: 1 DF, 1X/DAY
     Route: 048
     Dates: end: 2003

REACTIONS (1)
  - Meningioma [Not Recovered/Not Resolved]
